FAERS Safety Report 5083152-2 (Version None)
Quarter: 2006Q3

REPORT INFORMATION
  Report Type: 
  Country: None (occurrence: None)
  Receive Date: 20060724
  Receipt Date: 20031121
  Transmission Date: 20061208
  Serious: Yes (Hospitalization)
  Sender: FDA-Public Use
  Company Number: DRON00206001401

PATIENT
  Age: 63 Year
  Sex: Female
  Weight: 64 kg

DRUGS (4)
  1. MARINOL [Suspect]
     Indication: MUSCLE SPASTICITY
     Dosage: 1 DOSAGE FORM QD ORAL DAILY DOSE: 1 DOSAGE FORM
     Route: 048
     Dates: start: 20020407, end: 20020624
  2. DESMOPRESSIN ACETATE [Concomitant]
     Indication: MULTIPLE SCLEROSIS
  3. HORMONE REPLACEMENT THERAPY (HORMONE REPLACEMENT THERAPY) [Concomitant]
  4. OXYBUTYNIN CHLORIDE [Concomitant]

REACTIONS (2)
  - RESPIRATORY TRACT INFECTION [None]
  - URINARY TRACT INFECTION [None]
